FAERS Safety Report 16848231 (Version 1)
Quarter: 2019Q3

REPORT INFORMATION
  Report Type: Spontaneous
  Country: US (occurrence: US)
  Receive Date: 20190925
  Receipt Date: 20190925
  Transmission Date: 20191005
  Serious: No
  Sender: FDA-Public Use
  Company Number: US-AMGEN-USASP2019154231

PATIENT
  Age: 79 Year
  Sex: Male

DRUGS (1)
  1. PROLIA [Suspect]
     Active Substance: DENOSUMAB
     Indication: OSTEOPOROSIS
     Dosage: UNK
     Route: 065

REACTIONS (7)
  - Oropharyngeal pain [Not Recovered/Not Resolved]
  - Pain [Recovering/Resolving]
  - Pain in jaw [Not Recovered/Not Resolved]
  - Gingival bleeding [Unknown]
  - Oral pain [Recovering/Resolving]
  - Ear pain [Not Recovered/Not Resolved]
  - Gingival pain [Unknown]

NARRATIVE: CASE EVENT DATE: 201909
